FAERS Safety Report 21982628 (Version 1)
Quarter: 2023Q1

REPORT INFORMATION
  Report Type: Other
  Country: US (occurrence: None)
  Receive Date: 20230213
  Receipt Date: 20230213
  Transmission Date: 20230418
  Serious: Yes (Other)
  Sender: FDA-Public Use
  Company Number: US-ROCHE-3280757

PATIENT
  Age: 92 Year
  Sex: Female

DRUGS (1)
  1. RITUXIMAB [Suspect]
     Active Substance: RITUXIMAB
     Indication: Extranodal marginal zone B-cell lymphoma (MALT type)
     Route: 065
     Dates: end: 202203

REACTIONS (3)
  - Metastatic lymphoma [Unknown]
  - Disease progression [Unknown]
  - Drug ineffective [Unknown]
